FAERS Safety Report 7062429-5 (Version None)
Quarter: 2010Q4

REPORT INFORMATION
  Report Type: 
  Country: None (occurrence: None)
  Receive Date: 20101026
  Receipt Date: 20091104
  Transmission Date: 20110411
  Serious: No
  Sender: FDA-Public Use
  Company Number: US-PFIZER INC-2009293956

PATIENT
  Sex: Male
  Weight: 88.435 kg

DRUGS (2)
  1. LIPITOR [Suspect]
     Indication: BLOOD CHOLESTEROL
     Dosage: DAILY
     Route: 048
  2. ZOCOR [Suspect]
     Indication: BLOOD CHOLESTEROL
     Dosage: UNK

REACTIONS (1)
  - MUSCLE FATIGUE [None]
